FAERS Safety Report 20429648 (Version 1)
Quarter: 2022Q1

REPORT INFORMATION
  Report Type: Report from Study
  Country: FR (occurrence: FR)
  Receive Date: 20220204
  Receipt Date: 20220204
  Transmission Date: 20220423
  Serious: Yes (Other)
  Sender: FDA-Public Use
  Company Number: FR-SERVIER-S19008979

PATIENT

DRUGS (9)
  1. PEGASPARGASE [Suspect]
     Active Substance: PEGASPARGASE
     Indication: Acute lymphocytic leukaemia
     Dosage: 2400 IU, QD, D8, D36
     Route: 042
     Dates: start: 20180910, end: 20180910
  2. PEGASPARGASE [Suspect]
     Active Substance: PEGASPARGASE
     Dosage: 2400 IU, QD, D8, D36
     Route: 042
     Dates: start: 20180917
  3. TN UNSPECIFIED [Concomitant]
     Indication: Acute lymphocytic leukaemia
     Dosage: 1.5 MG, ON DAYS 8, 15, 22 AND 29
     Route: 042
     Dates: start: 20180806
  4. TN UNSPECIFIED [Concomitant]
     Dosage: 1.4 MG, ON D1, D8, D29, D36, D57
     Route: 042
     Dates: start: 20180910
  5. TN UNSPECIFIED [Concomitant]
     Indication: Acute lymphocytic leukaemia
     Dosage: 6 MG, ON D1 TO D5, D29 TO D33, D55 TO D61
     Route: 048
     Dates: start: 20180910
  6. TN UNSPECIFIED [Concomitant]
     Indication: Acute lymphocytic leukaemia
     Dosage: 20 MG, ON D1 TO D21, D29 TO D49, D55 TO D77
     Route: 048
     Dates: start: 20180910
  7. TN UNSPECIFIED [Concomitant]
     Dosage: 50 MG/M?/DAY (48.5 MG), ON DAYS 1-21, 29-49, 57-77
     Route: 048
  8. TN UNSPECIFIED [Concomitant]
     Indication: Acute lymphocytic leukaemia
     Dosage: 12 MG, ON D2, D30, D58
     Route: 037
     Dates: start: 20180911
  9. TN UNSPECIFIED [Concomitant]
     Dosage: 25 MG, ON D8, D15, D22, D36, D43, D50
     Route: 048
     Dates: start: 20180917

REACTIONS (3)
  - Hypertriglyceridaemia [Recovered/Resolved]
  - Gamma-glutamyltransferase increased [Recovered/Resolved]
  - Hyperbilirubinaemia [Recovered/Resolved]

NARRATIVE: CASE EVENT DATE: 20181112
